FAERS Safety Report 5584706-7 (Version None)
Quarter: 2008Q1

REPORT INFORMATION
  Report Type: 
  Country: None (occurrence: None)
  Receive Date: 20080103
  Receipt Date: 20071219
  Transmission Date: 20080703
  Serious: Yes (Other)
  Sender: FDA-Public Use
  Company Number: 2007SP023480

PATIENT
  Age: 50 Year
  Sex: Female

DRUGS (1)
  1. DESLORATADINE [Suspect]
     Indication: PRURIGO
     Dosage: 1DF; QD; PO
     Route: 048
     Dates: start: 20071019, end: 20071021

REACTIONS (7)
  - DRUG HALF-LIFE INCREASED [None]
  - FATIGUE [None]
  - HEAD DISCOMFORT [None]
  - HEADACHE [None]
  - SOMNOLENCE [None]
  - TONGUE OEDEMA [None]
  - VOMITING [None]
